FAERS Safety Report 8164597-0 (Version None)
Quarter: 2012Q1

REPORT INFORMATION
  Report Type: 
  Country: None (occurrence: None)
  Receive Date: 20120227
  Receipt Date: 20120216
  Transmission Date: 20120608
  Serious: Yes (Other)
  Sender: FDA-Public Use
  Company Number: BR-AMGEN-BRASP2012010989

PATIENT
  Age: 44 Year
  Sex: Male
  Weight: 120 kg

DRUGS (5)
  1. HYDROCHLOROTHIAZIDE [Concomitant]
     Indication: DIURETIC THERAPY
     Dosage: UNK, ONCE DAILY
  2. ENALAPRIL MALEATE [Concomitant]
     Indication: HYPERTENSION
     Dosage: UNK, 2X/DAY
     Dates: start: 20020101
  3. ENBREL [Suspect]
     Dosage: 50 MG, WEEKLY
     Route: 058
     Dates: start: 20110801
  4. CIPROFLOXACIN [Concomitant]
     Indication: INFLAMMATION
     Dosage: UNK
  5. ENBREL [Suspect]
     Indication: ANKYLOSING SPONDYLITIS
     Dosage: 25 MG, 2X/WEEK
     Route: 058
     Dates: start: 20060601

REACTIONS (7)
  - ARTHROPATHY [None]
  - SKIN DISCOLOURATION [None]
  - SKIN DISORDER [None]
  - LOCALISED INFECTION [None]
  - INCORRECT STORAGE OF DRUG [None]
  - PATIENT-DEVICE INCOMPATIBILITY [None]
  - DRUG INEFFECTIVE [None]
